FAERS Safety Report 7271084-0 (Version None)
Quarter: 2011Q1

REPORT INFORMATION
  Report Type: 
  Country: None (occurrence: None)
  Receive Date: 20110202
  Receipt Date: 20110120
  Transmission Date: 20110831
  Serious: Yes (Hospitalization)
  Sender: FDA-Public Use
  Company Number: US-CELGENEUS-163-20785-11012180

PATIENT
  Age: 64 Year
  Sex: Female

DRUGS (1)
  1. THALOMID [Suspect]
     Indication: SARCOMA
     Route: 048

REACTIONS (4)
  - ASTHENIA [None]
  - ENTEROCOCCAL INFECTION [None]
  - KLEBSIELLA BACTERAEMIA [None]
  - SUPRAVENTRICULAR TACHYCARDIA [None]
